FAERS Safety Report 4613962-4 (Version None)
Quarter: 2005Q1

REPORT INFORMATION
  Report Type: 
  Country: None (occurrence: None)
  Receive Date: 20050321
  Receipt Date: 20041202
  Transmission Date: 20050727
  Serious: Yes (Other)
  Sender: FDA-Public Use
  Company Number: SE-ROCHE-388007

PATIENT
  Age: 59 Year
  Sex: Male

DRUGS (5)
  1. BONDRONAT [Suspect]
     Indication: PROPHYLAXIS
     Route: 048
     Dates: start: 20041105, end: 20041129
  2. ELOXATIN [Concomitant]
     Dosage: REPORTED AS SOLUTION FOR INFUSION
     Route: 042
     Dates: start: 20041004
  3. OXYCONTIN [Concomitant]
     Indication: PAIN
     Dosage: TRADE NAME WAS REPORTED AS OXIKODON
     Route: 048
     Dates: start: 20041004
  4. NUTRITIONAL SUPPLEMENT NOS [Concomitant]
     Dosage: REPORTED AS A CALCIUM AND MAGNESIUM SUPPLEMENT
     Route: 048
     Dates: start: 20041004
  5. OXYNORM [Concomitant]

REACTIONS (3)
  - DISCOMFORT [None]
  - DYSPHAGIA [None]
  - PHARYNGOLARYNGEAL PAIN [None]
